FAERS Safety Report 16461086 (Version 2)
Quarter: 2019Q3

REPORT INFORMATION
  Report Type: Spontaneous
  Country: CH (occurrence: CH)
  Receive Date: 20190621
  Receipt Date: 20190812
  Transmission Date: 20191004
  Serious: Yes (Other)
  Sender: FDA-Public Use
  Company Number: CH-BRISTOL-MYERS SQUIBB COMPANY-BMS-2019-058216

PATIENT
  Age: 50 Year
  Sex: Male

DRUGS (3)
  1. NIVOLUMAB [Suspect]
     Active Substance: NIVOLUMAB
     Indication: METASTATIC MALIGNANT MELANOMA
     Dosage: 100 MILLIGRAM
     Route: 065
     Dates: start: 20190222, end: 20190510
  2. IPILIMUMAB [Suspect]
     Active Substance: IPILIMUMAB
     Indication: METASTATIC MALIGNANT MELANOMA
     Dosage: 250 MILLIGRAM
     Route: 065
     Dates: start: 20190222, end: 20190510
  3. HYDROCORTISON [HYDROCORTISONE ACETATE] [Concomitant]
     Indication: PRODUCT USED FOR UNKNOWN INDICATION
     Dosage: UNK
     Route: 065
     Dates: start: 20190510

REACTIONS (3)
  - Deafness [Recovered/Resolved]
  - Rash [Unknown]
  - Glucocorticoid deficiency [Unknown]

NARRATIVE: CASE EVENT DATE: 20190606
